FAERS Safety Report 8306727-3 (Version None)
Quarter: 2012Q2

REPORT INFORMATION
  Report Type: 
  Country: None (occurrence: None)
  Receive Date: 20120420
  Receipt Date: 20120404
  Transmission Date: 20120825
  Serious: Yes (Other)
  Sender: FDA-Public Use
  Company Number: HRA-CDB20120130

PATIENT
  Sex: Female

DRUGS (1)
  1. ELLA [Suspect]
     Indication: CONTRACEPTION
     Dates: start: 20120203

REACTIONS (2)
  - MATERNAL EXPOSURE BEFORE PREGNANCY [None]
  - PREGNANCY ON CONTRACEPTIVE [None]
